FAERS Safety Report 4685512-8 (Version None)
Quarter: 2005Q2

REPORT INFORMATION
  Report Type: 
  Country: None (occurrence: None)
  Receive Date: 20050531
  Receipt Date: 20050323
  Transmission Date: 20051028
  Serious: No
  Sender: FDA-Public Use
  Company Number: WAES 0503USA04144

PATIENT
  Age: 81 Year
  Sex: Male

DRUGS (5)
  1. ZETIA [Suspect]
     Indication: BLOOD CHOLESTEROL INCREASED
     Dosage: 10 MG/DAILY/PO
     Route: 048
     Dates: start: 20040901, end: 20050319
  2. COZAAR [Concomitant]
  3. LEVOXYL [Concomitant]
  4. PLAVIX [Concomitant]
  5. PRAVACHOL [Concomitant]

REACTIONS (2)
  - PRURITUS [None]
  - RASH [None]
